FAERS Safety Report 21425907 (Version 2)
Quarter: 2024Q2

REPORT INFORMATION
  Report Type: Spontaneous
  Country: DE (occurrence: DE)
  Receive Date: 20221008
  Receipt Date: 20240506
  Transmission Date: 20240716
  Serious: Yes (Death, Hospitalization)
  Sender: FDA-Public Use
  Company Number: DE-ADRED-08397-02

PATIENT
  Age: 61 Year
  Sex: Male
  Weight: 75 kg

DRUGS (7)
  1. LEUCOVORIN [Suspect]
     Active Substance: LEUCOVORIN\LEUCOVORIN CALCIUM
     Indication: Product used for unknown indication
     Dosage: SCHEME 09082021
     Route: 065
  2. FLUOROURACIL [Suspect]
     Active Substance: FLUOROURACIL
     Indication: Product used for unknown indication
     Dosage: SCHEME 09082021
     Route: 065
  3. PANTOPRAZOLE [Concomitant]
     Active Substance: PANTOPRAZOLE
     Indication: Product used for unknown indication
     Dosage: 20MG, 1-0-0-0
     Route: 065
  4. OPDIVO [Suspect]
     Active Substance: NIVOLUMAB
     Indication: Non-small cell lung cancer
     Dosage: SCHEME 09082021
     Route: 065
  5. METOCLOPRAMIDE [Concomitant]
     Active Substance: METOCLOPRAMIDE
     Indication: Product used for unknown indication
     Dosage: DOSAGE TEXT: 10 MG, REQUIREMENT
     Route: 065
  6. POLYETHYLENE GLYCOLS [Concomitant]
     Active Substance: POLYETHYLENE GLYCOLS
     Indication: Product used for unknown indication
     Dosage: REQUIREMENT
     Route: 065
  7. FENTANYL [Suspect]
     Active Substance: FENTANYL\FENTANYL CITRATE
     Indication: Product used for unknown indication
     Dosage: SCHEME, PATCH TRANSDERMAL
     Route: 062

REACTIONS (7)
  - Confusional state [Unknown]
  - Dysarthria [Unknown]
  - Anaemia [Unknown]
  - General physical health deterioration [Unknown]
  - Cachexia [Unknown]
  - Systemic infection [Fatal]
  - Condition aggravated [Unknown]

NARRATIVE: CASE EVENT DATE: 20210817
